FAERS Safety Report 14810263 (Version 2)
Quarter: 2018Q3

REPORT INFORMATION
  Report Type: Report from Study
  Country: US (occurrence: US)
  Receive Date: 20180425
  Receipt Date: 20180719
  Transmission Date: 20181010
  Serious: No
  Sender: FDA-Public Use
  Company Number: US-AMGEN-USASL2018027761

PATIENT
  Sex: Female

DRUGS (1)
  1. REPATHA [Suspect]
     Active Substance: EVOLOCUMAB
     Indication: BLOOD CHOLESTEROL INCREASED
     Dosage: 140 MG, Q2WK
     Route: 058
     Dates: start: 20171207, end: 201804

REACTIONS (4)
  - Rhinorrhoea [Recovered/Resolved]
  - Ear infection [Recovered/Resolved]
  - Respiratory tract congestion [Recovered/Resolved]
  - Hypoacusis [Unknown]
